FAERS Safety Report 9617639 (Version 2)
Quarter: 2013Q4

REPORT INFORMATION
  Report Type: Spontaneous
  Country: NL (occurrence: NL)
  Receive Date: 20131011
  Receipt Date: 20131016
  Transmission Date: 20140711
  Serious: Yes (Other)
  Sender: FDA-Public Use
  Company Number: NL-WATSON-2013-18319

PATIENT
  Age: 68 Year
  Sex: Male
  Weight: 96 kg

DRUGS (4)
  1. IRBESARTAN [Suspect]
     Indication: ATRIAL FIBRILLATION
     Dosage: 300 MG, UNK
     Route: 048
     Dates: start: 20120101
  2. ATORVASTATIN CALCIUM [Suspect]
     Indication: BLOOD CHOLESTEROL INCREASED
     Dosage: 40 MG, UNK
     Route: 048
     Dates: start: 2012
  3. METOPROLOL SUCCINATE [Suspect]
     Indication: ATRIAL FIBRILLATION
     Dosage: 100 MG, DAILY
     Route: 048
     Dates: start: 2012
  4. ESOMEPRAZOLE [Concomitant]
     Indication: PRODUCT USED FOR UNKNOWN INDICATION
     Dosage: 200 MG, DAILY
     Route: 048
     Dates: start: 2012

REACTIONS (4)
  - Balance disorder [Not Recovered/Not Resolved]
  - Mood swings [Not Recovered/Not Resolved]
  - Palpitations [Not Recovered/Not Resolved]
  - Therapeutic response unexpected with drug substitution [Not Recovered/Not Resolved]
